FAERS Safety Report 10170582 (Version 2)
Quarter: 2015Q2

REPORT INFORMATION
  Report Type: Report from Study
  Country: MX (occurrence: MX)
  Receive Date: 20140513
  Receipt Date: 20150401
  Transmission Date: 20150821
  Serious: Yes (Other)
  Sender: FDA-Public Use
  Company Number: PHHY2014MX057859

PATIENT
  Age: 70 Year
  Sex: Female

DRUGS (4)
  1. TAFIL [Concomitant]
     Active Substance: ALPRAZOLAM
     Indication: PRODUCT USED FOR UNKNOWN INDICATION
     Dosage: 0.5 UKN, DAILY
     Route: 065
  2. EXFORGE [Suspect]
     Active Substance: AMLODIPINE BESYLATE\VALSARTAN
     Indication: HYPERTENSION
     Dosage: 1 DF, QD
     Route: 048
     Dates: start: 2012
  3. EXFORGE [Suspect]
     Active Substance: AMLODIPINE BESYLATE\VALSARTAN
     Dosage: 0.5 DF, QD
     Route: 048
  4. NEXIUM I.V. [Concomitant]
     Active Substance: ESOMEPRAZOLE SODIUM
     Indication: PRODUCT USED FOR UNKNOWN INDICATION
     Dosage: UNK UKN, OCCASIONALLY
     Route: 065

REACTIONS (13)
  - Intervertebral disc protrusion [Recovering/Resolving]
  - Road traffic accident [Recovering/Resolving]
  - Pain in extremity [Recovering/Resolving]
  - Hypoaesthesia [Recovering/Resolving]
  - Headache [Recovered/Resolved]
  - Off label use [Unknown]
  - Malaise [Recovered/Resolved]
  - Inflammation [Recovering/Resolving]
  - Wrong technique in drug usage process [Not Recovered/Not Resolved]
  - Dizziness [Recovered/Resolved]
  - Hernia pain [Unknown]
  - Spinal disorder [Recovering/Resolving]
  - Muscle contracture [Recovering/Resolving]

NARRATIVE: CASE EVENT DATE: 201402
